FAERS Safety Report 23391383 (Version 2)
Quarter: 2024Q2

REPORT INFORMATION
  Report Type: Report from Study
  Country: CA (occurrence: CA)
  Receive Date: 20240111
  Receipt Date: 20240626
  Transmission Date: 20240715
  Serious: Yes (Hospitalization, Other)
  Sender: FDA-Public Use
  Company Number: None

PATIENT
  Age: 72 Year
  Sex: Female

DRUGS (1)
  1. ZOLEDRONIC ACID [Suspect]
     Active Substance: ZOLEDRONIC ACID
     Indication: Osteoporosis
     Dosage: ZOLEDRONIC ACID INJECTION, 5MG (BASE)/100ML (0.005MG (BASE)/ML
     Dates: start: 20210616

REACTIONS (2)
  - Multiple fractures [Unknown]
  - Road traffic accident [Unknown]

NARRATIVE: CASE EVENT DATE: 20231210
